FAERS Safety Report 8064946-8 (Version None)
Quarter: 2012Q1

REPORT INFORMATION
  Report Type: 
  Country: None (occurrence: None)
  Receive Date: 20120124
  Receipt Date: 20120117
  Transmission Date: 20120608
  Serious: No
  Sender: FDA-Public Use
  Company Number: US-BIOGENIDEC-2012BI001965

PATIENT
  Sex: Female

DRUGS (1)
  1. TYSABRI [Suspect]
     Indication: MULTIPLE SCLEROSIS
     Route: 042
     Dates: start: 20110325

REACTIONS (7)
  - MYALGIA [None]
  - INFLUENZA [None]
  - PAIN [None]
  - MALAISE [None]
  - DIZZINESS [None]
  - VOMITING [None]
  - BONE PAIN [None]
